FAERS Safety Report 6879919 (Version 8)
Quarter: 2012Q4

REPORT INFORMATION
  Report Type: Report from Study
  Country: FR (occurrence: FR)
  Receive Date: 20090113
  Receipt Date: 20121219
  Transmission Date: 20130627
  Serious: Yes (Life-Threatening, Hospitalization, Disabling, Other)
  Sender: FDA-Public Use
  Company Number: FR-GILEAD-2009-0019752

PATIENT
  Age: 34 Year
  Sex: Female

DRUGS (18)
  1. EMTRICITABINE/TENOFOVIR DISOPROXIL FUMARATE [Suspect]
     Indication: HIV INFECTION
     Route: 048
     Dates: start: 20081114
  2. SUSTIVA [Suspect]
     Indication: HIV INFECTION
     Route: 048
     Dates: start: 20081114
  3. SUSTIVA [Suspect]
     Dates: start: 20100107
  4. FUZEON [Suspect]
     Indication: HIV INFECTION
     Route: 058
     Dates: start: 20081114, end: 20090430
  5. RIFATER [Suspect]
     Indication: TUBERCULOSIS
     Dates: start: 20081114
  6. MYAMBUTOL [Suspect]
     Indication: TUBERCULOSIS
     Dates: start: 20081114
  7. SPECIAFOLDINE [Concomitant]
     Indication: ANAEMIA
     Dates: start: 20081106
  8. BACTRIM [Concomitant]
     Indication: PROPHYLAXIS
     Route: 048
     Dates: start: 20081114
  9. PIRILENE [Concomitant]
     Route: 048
     Dates: start: 20090203, end: 20090325
  10. MYAMBUTOL [Concomitant]
     Route: 048
     Dates: start: 20090203, end: 20090325
  11. RIMIFON [Concomitant]
     Route: 048
     Dates: start: 20090203, end: 20090325
  12. RIFAMPICIN [Concomitant]
     Route: 042
     Dates: start: 20090203, end: 20090325
  13. RIFADINE [Concomitant]
     Route: 048
  14. SCOPODERM [Concomitant]
     Indication: NEUROPATHY PERIPHERAL
  15. LAROXYL [Concomitant]
     Route: 048
  16. DUROGESIC [Concomitant]
  17. FORTIMEL [Concomitant]
     Route: 048
  18. SOLUMEDROL [Concomitant]
     Indication: IMMUNE RECONSTITUTION INFLAMMATORY SYNDROME
     Dates: start: 20081201

REACTIONS (6)
  - Pyrexia [Recovered/Resolved]
  - Impaired gastric emptying [Unknown]
  - Impaired gastric emptying [Recovering/Resolving]
  - Immune reconstitution inflammatory syndrome [Recovered/Resolved]
  - Immune reconstitution inflammatory syndrome [Recovered/Resolved]
  - General physical condition abnormal [Recovered/Resolved]
